FAERS Safety Report 13826152 (Version 2)
Quarter: 2017Q3

REPORT INFORMATION
  Report Type: Spontaneous
  Country: JP (occurrence: JP)
  Receive Date: 20170802
  Receipt Date: 20170808
  Transmission Date: 20171127
  Serious: Yes (Other)
  Sender: FDA-Public Use
  Company Number: JP-PFIZER INC-2017334715

PATIENT
  Age: 75 Year
  Sex: Male

DRUGS (2)
  1. AMLODIN [Suspect]
     Active Substance: AMLODIPINE BESYLATE
     Dosage: UNK
  2. CLARITHROMYCIN. [Interacting]
     Active Substance: CLARITHROMYCIN
     Dosage: UNK

REACTIONS (10)
  - Clostridium difficile colitis [Unknown]
  - Fatigue [Unknown]
  - Dizziness [Unknown]
  - Pulmonary tuberculosis [Unknown]
  - Drug interaction [Unknown]
  - Prothrombin time prolonged [Unknown]
  - Orthostatic hypotension [Unknown]
  - Nausea [Unknown]
  - Haematoma [Unknown]
  - Fall [Unknown]
